FAERS Safety Report 18244093 (Version 2)
Quarter: 2020Q4

REPORT INFORMATION
  Report Type: Report from Study
  Country: None (occurrence: US)
  Receive Date: 20200909
  Receipt Date: 20201112
  Transmission Date: 20210113
  Serious: Yes (Hospitalization)
  Sender: FDA-Public Use
  Company Number: US-ABBVIE-20K-163-3555078-00

PATIENT
  Sex: Female
  Weight: 123.03 kg

DRUGS (1)
  1. HUMIRA [Suspect]
     Active Substance: ADALIMUMAB
     Indication: CROHN^S DISEASE
     Dosage: CITRATE FREE
     Route: 058

REACTIONS (10)
  - Gait inability [Unknown]
  - Joint range of motion decreased [Unknown]
  - Sleep disorder [Unknown]
  - Rheumatoid arthritis [Unknown]
  - Pain in jaw [Unknown]
  - Muscle spasms [Unknown]
  - Joint effusion [Unknown]
  - Back disorder [Unknown]
  - Hypoaesthesia [Recovered/Resolved]
  - Pain in extremity [Unknown]

NARRATIVE: CASE EVENT DATE: 2020
